FAERS Safety Report 9264223 (Version 3)
Quarter: 2013Q2

REPORT INFORMATION
  Report Type: Spontaneous
  Country: JP (occurrence: JP)
  Receive Date: 20130430
  Receipt Date: 20130531
  Transmission Date: 20140414
  Serious: Yes (Other)
  Sender: FDA-Public Use
  Company Number: JP-B.I. PHARMACEUTICALS,INC./RIDGEFIELD-2013-BI-11117NB

PATIENT
  Age: 87 Year
  Sex: Female
  Weight: 47.9 kg

DRUGS (2)
  1. PRAZAXA [Suspect]
     Indication: ATRIAL FIBRILLATION
     Dosage: 220 MG
     Route: 048
     Dates: end: 20130425
  2. MAGLAX [Concomitant]
     Indication: CONSTIPATION
     Dosage: 990 MG
     Route: 048

REACTIONS (1)
  - International normalised ratio increased [Recovered/Resolved]
